FAERS Safety Report 18229325 (Version 4)
Quarter: 2020Q4

REPORT INFORMATION
  Report Type: Report from Study
  Country: FR (occurrence: FR)
  Receive Date: 20200903
  Receipt Date: 20201116
  Transmission Date: 20210113
  Serious: Yes (Hospitalization)
  Sender: FDA-Public Use
  Company Number: FR-JNJFOC-20200838213

PATIENT
  Age: 45 Year
  Sex: Female
  Weight: 87 kg

DRUGS (2)
  1. VOGALENE [Concomitant]
     Active Substance: METOPIMAZINE
     Route: 048
     Dates: start: 20200716
  2. TRABECTEDIN [Suspect]
     Active Substance: TRABECTEDIN
     Indication: SYNOVIAL SARCOMA
     Dosage: LAST ADMINISTRATION OF TRABECTEDIN ON 16-JUL-2020 BEFORE EVENT.
     Route: 042
     Dates: start: 20200625

REACTIONS (1)
  - Hepatocellular injury [Recovered/Resolved]

NARRATIVE: CASE EVENT DATE: 20200721
